FAERS Safety Report 8152245-5 (Version None)
Quarter: 2012Q1

REPORT INFORMATION
  Report Type: 
  Country: None (occurrence: None)
  Receive Date: 20120221
  Receipt Date: 20111011
  Transmission Date: 20120608
  Serious: Yes (Other)
  Sender: FDA-Public Use
  Company Number: CA-JNJFOC-20120106893

PATIENT
  Sex: Male
  Weight: 53.5 kg

DRUGS (2)
  1. REMICADE [Suspect]
     Route: 042
     Dates: start: 20111011
  2. REMICADE [Suspect]
     Indication: CROHN'S DISEASE
     Route: 042
     Dates: start: 20010101

REACTIONS (5)
  - PARAESTHESIA [None]
  - PHARYNGEAL ERYTHEMA [None]
  - PALATAL OEDEMA [None]
  - ERYTHEMA [None]
  - INFUSION RELATED REACTION [None]
